FAERS Safety Report 8820366 (Version 1)
Quarter: 2012Q4

REPORT INFORMATION
  Report Type: 
  Country: FR (occurrence: FR)
  Receive Date: 20121002
  Receipt Date: 20121002
  Transmission Date: 20130627
  Serious: Yes (Other)
  Sender: FDA-Public Use
  Company Number: FR-NOVOPROD-360585

PATIENT
  Age: 73 Year
  Sex: Female

DRUGS (7)
  1. INSULATARD NPH HUMAN [Suspect]
     Indication: TYPE 1 DIABETES MELLITUS
     Dosage: 8 IU, qd
     Route: 058
  2. KARDEGIC [Concomitant]
  3. TAHOR [Concomitant]
  4. LOSARTAN [Concomitant]
  5. TRIVASTAL                          /00397201/ [Concomitant]
  6. BISOPROLOL [Concomitant]
  7. HYDROCHLOROTHIAZIDE [Concomitant]

REACTIONS (2)
  - Monoparesis [Recovered/Resolved]
  - Hypoglycaemia [Recovered/Resolved]
